FAERS Safety Report 7441500-X (Version None)
Quarter: 2011Q2

REPORT INFORMATION
  Report Type: 
  Country: None (occurrence: None)
  Receive Date: 20110422
  Receipt Date: 20110422
  Transmission Date: 20111010
  Serious: Yes (Other)
  Sender: FDA-Public Use
  Company Number: None

PATIENT
  Sex: Male
  Weight: 79.5 kg

DRUGS (1)
  1. TAMSULOSIN HCL [Suspect]
     Indication: PROSTATE CANCER
     Dosage: 0.4MG DAILY PO
     Route: 048
     Dates: start: 20100706, end: 20100728

REACTIONS (2)
  - URTICARIA [None]
  - DIARRHOEA [None]
